FAERS Safety Report 4869554-5 (Version None)
Quarter: 2005Q4

REPORT INFORMATION
  Report Type: 
  Country: None (occurrence: None)
  Receive Date: 20051227
  Receipt Date: 20051209
  Transmission Date: 20060501
  Serious: Yes (Hospitalization)
  Sender: FDA-Public Use
  Company Number: 220211

PATIENT
  Sex: Female

DRUGS (1)
  1. METALYSE (TENECTEPLASE) [Suspect]
     Dates: start: 20051104, end: 20051104

REACTIONS (1)
  - VENTRICULAR SEPTAL DEFECT [None]
